FAERS Safety Report 6384386-7 (Version None)
Quarter: 2009Q4

REPORT INFORMATION
  Report Type: 
  Country: None (occurrence: None)
  Receive Date: 20091001
  Receipt Date: 20090922
  Transmission Date: 20100525
  Serious: Yes (Other)
  Sender: FDA-Public Use
  Company Number: CA-JNJFOC-20090907106

PATIENT
  Sex: Male

DRUGS (2)
  1. REMICADE [Suspect]
     Dosage: 38TH INFUSION
     Route: 042
     Dates: end: 20090825
  2. REMICADE [Suspect]
     Indication: CROHN'S DISEASE
     Dosage: INDUCTION DOSE AT 0,2, 6 WEEKS
     Route: 042
     Dates: end: 20090825

REACTIONS (1)
  - PYODERMA GANGRENOSUM [None]
